FAERS Safety Report 14069934 (Version 5)
Quarter: 2017Q4

REPORT INFORMATION
  Report Type: Report from Study
  Country: US (occurrence: US)
  Receive Date: 20171011
  Receipt Date: 20171122
  Transmission Date: 20180321
  Serious: Yes (Hospitalization)
  Sender: FDA-Public Use
  Company Number: US-BEH-2017084148

PATIENT
  Age: 30 Year
  Sex: Female

DRUGS (28)
  1. ALBUTEROL                          /00139501/ [Concomitant]
     Active Substance: ALBUTEROL
     Dosage: 90 ?G, 1-2 PUFF
     Route: 055
     Dates: start: 20170616
  2. RIASTAP [Suspect]
     Active Substance: FIBRINOGEN HUMAN
     Dosage: 3117 MG, UNK
     Route: 065
     Dates: start: 20171007
  3. MULTIVITAMIN                       /00097801/ [Concomitant]
     Active Substance: VITAMINS
  4. NORETHINDRONE                      /00044901/ [Concomitant]
     Active Substance: NORETHINDRONE
     Dosage: 0.35 MG, UNK
     Route: 065
  5. ADVAIR HFA [Concomitant]
     Active Substance: FLUTICASONE PROPIONATE\SALMETEROL XINAFOATE
     Dosage: UNK
     Route: 065
     Dates: start: 201708
  6. RIASTAP [Suspect]
     Active Substance: FIBRINOGEN HUMAN
     Dosage: 3117 MG, UNK
     Route: 065
     Dates: start: 20171009
  7. ASPIRIN. [Concomitant]
     Active Substance: ASPIRIN
     Dosage: 243 UNK, UNK
     Route: 065
  8. NEXPLANON [Concomitant]
     Active Substance: ETONOGESTREL
     Indication: CONTRACEPTION
     Dosage: 68 MG, UNK
     Route: 065
     Dates: start: 20170317
  9. WARFARIN [Concomitant]
     Active Substance: WARFARIN
     Dosage: 6 MG, UNK
     Route: 065
  10. RIASTAP [Suspect]
     Active Substance: FIBRINOGEN HUMAN
     Indication: PROPHYLAXIS
     Dosage: 2.2 G, UNK
     Route: 065
     Dates: start: 20090819
  11. RIASTAP [Suspect]
     Active Substance: FIBRINOGEN HUMAN
     Dosage: 3000 MG, UNK
     Route: 065
     Dates: start: 20171003
  12. VITAMIN C [Concomitant]
     Active Substance: ASCORBIC ACID
     Dosage: 500 UNK, UNK
     Route: 065
  13. ASPIRIN. [Concomitant]
     Active Substance: ASPIRIN
     Indication: THROMBOSIS PROPHYLAXIS
     Dosage: 81 MG, UNK
     Route: 065
     Dates: start: 20090915
  14. MIDAZOLAM [Concomitant]
     Active Substance: MIDAZOLAM HYDROCHLORIDE
     Dosage: 2 MG, UNK
     Route: 065
  15. HEPARIN SODIUM. [Concomitant]
     Active Substance: HEPARIN SODIUM
     Dosage: 5 ML, UNK
     Route: 065
  16. FISH OIL [Concomitant]
     Active Substance: FISH OIL
  17. LORAZEPAM. [Concomitant]
     Active Substance: LORAZEPAM
     Dosage: 0.5MG, TID
     Route: 065
     Dates: start: 20170815
  18. RIASTAP [Suspect]
     Active Substance: FIBRINOGEN HUMAN
     Dosage: 3117 MG, TOT
     Route: 065
     Dates: start: 20170930
  19. RIASTAP [Suspect]
     Active Substance: FIBRINOGEN HUMAN
     Dosage: 3204 MG, TOT
     Route: 065
     Dates: start: 20170930
  20. PRADAXA [Concomitant]
     Active Substance: DABIGATRAN ETEXILATE MESYLATE
     Dosage: 150 MG, UNK
     Route: 065
  21. HEPARIN [Concomitant]
     Active Substance: HEPARIN SODIUM
     Dosage: 3310 IU, UNK
     Route: 065
  22. RIASTAP [Suspect]
     Active Substance: FIBRINOGEN HUMAN
     Indication: FACTOR I DEFICIENCY
     Dosage: 3000 MG, EVERY 3 DAYS
     Route: 065
     Dates: start: 20170925
  23. RIASTAP [Suspect]
     Active Substance: FIBRINOGEN HUMAN
     Dosage: 3117 MG, UNK
     Route: 065
     Dates: start: 20171003
  24. B COMPLEX                          /00212701/ [Concomitant]
     Active Substance: NIACINAMIDE\PYRIDOXINE\RIBOFLAVIN\THIAMINE
  25. DABIGATRAN [Concomitant]
     Active Substance: DABIGATRAN
     Dosage: 150 MG, UNK
     Route: 065
  26. AMICAR [Concomitant]
     Active Substance: AMINOCAPROIC ACID
     Dosage: 13 ML, UNK
     Route: 065
  27. ALBUTEROL                          /00139501/ [Concomitant]
     Active Substance: ALBUTEROL
     Indication: BRONCHIAL HYPERREACTIVITY
     Dosage: 2.5 MG, UNK
     Route: 065
  28. BIOTIN [Concomitant]
     Active Substance: BIOTIN
     Indication: SUPPLEMENTATION THERAPY
     Dosage: UNK, QD
     Route: 065

REACTIONS (1)
  - Haemoptysis [Recovered/Resolved]

NARRATIVE: CASE EVENT DATE: 20170930
